FAERS Safety Report 20732638 (Version 1)
Quarter: 2022Q2

REPORT INFORMATION
  Report Type: Spontaneous
  Country: US (occurrence: US)
  Receive Date: 20220420
  Receipt Date: 20220420
  Transmission Date: 20220720
  Serious: Yes (Hospitalization)
  Sender: FDA-Public Use
  Company Number: US-NOVARTISPH-NVSC2022US084286

PATIENT
  Age: 10 Year
  Sex: Female

DRUGS (5)
  1. OLANZAPINE [Suspect]
     Active Substance: OLANZAPINE
     Indication: Nausea
     Dosage: UNK
     Route: 065
  2. OLANZAPINE [Suspect]
     Active Substance: OLANZAPINE
     Indication: Vomiting
  3. PEGASPARGASE [Suspect]
     Active Substance: PEGASPARGASE
     Indication: Non-Hodgkin^s lymphoma
     Dosage: UNK
     Route: 065
  4. VINCRISTINE [Concomitant]
     Active Substance: VINCRISTINE
     Indication: Non-Hodgkin^s lymphoma
     Dosage: UNK
     Route: 065
  5. DEXAMETHASONE [Concomitant]
     Active Substance: DEXAMETHASONE
     Indication: Non-Hodgkin^s lymphoma
     Dosage: UNK
     Route: 065

REACTIONS (3)
  - Hypertriglyceridaemia [Recovered/Resolved]
  - Product use issue [Unknown]
  - Product use in unapproved indication [Unknown]
